FAERS Safety Report 5849301-0 (Version None)
Quarter: 2008Q3

REPORT INFORMATION
  Report Type: 
  Country: None (occurrence: None)
  Receive Date: 20080815
  Receipt Date: 20080804
  Transmission Date: 20090109
  Serious: Yes (Death, Hospitalization, Other)
  Sender: FDA-Public Use
  Company Number: 51187

PATIENT
  Sex: Male
  Weight: 81.6475 kg

DRUGS (1)
  1. ETOMIDATE INJ. 20MG/10ML 0 BEDFORD LABS, INC. [Suspect]
     Indication: ENDOTRACHEAL INTUBATION
     Dates: start: 20080608

REACTIONS (3)
  - CARDIAC ARREST [None]
  - COMA [None]
  - INCORRECT DOSE ADMINISTERED [None]
